FAERS Safety Report 8450003 (Version 2)
Quarter: 2012Q4

REPORT INFORMATION
  Report Type: 
  Country: BR (occurrence: BR)
  Receive Date: 20120309
  Receipt Date: 20120926
  Transmission Date: 20130627
  Serious: Yes (Other)
  Sender: FDA-Public Use
  Company Number: BR-US-EMD SERONO, INC.-7116982

PATIENT
  Age: 29 None
  Sex: Female

DRUGS (1)
  1. REBIF [Suspect]
     Indication: RELAPSING-REMITTING MULTIPLE SCLEROSIS
     Route: 058
     Dates: start: 20100228

REACTIONS (3)
  - Laryngeal oedema [Recovered/Resolved]
  - Irritability [Recovering/Resolving]
  - Urticaria [Recovered/Resolved]
